FAERS Safety Report 17434595 (Version 2)
Quarter: 2020Q1

REPORT INFORMATION
  Report Type: Spontaneous
  Country: ES (occurrence: ES)
  Receive Date: 20200219
  Receipt Date: 20200228
  Transmission Date: 20200409
  Serious: Yes (Hospitalization)
  Sender: FDA-Public Use
  Company Number: ES-BAUSCH-BL-2020-004849

PATIENT
  Sex: Female

DRUGS (1)
  1. ZYCLARA [Suspect]
     Active Substance: IMIQUIMOD
     Indication: ACTINIC CHEILITIS
     Dosage: 14 DAYS OF RESTING 10 DAYS OF TREATMENT
     Route: 061

REACTIONS (3)
  - Syncope [Unknown]
  - Application site reaction [Recovering/Resolving]
  - Skin plaque [Recovering/Resolving]
